FAERS Safety Report 4719273-0 (Version None)
Quarter: 2005Q3

REPORT INFORMATION
  Report Type: 
  Country: None (occurrence: None)
  Receive Date: 20050721
  Receipt Date: 20040928
  Transmission Date: 20060218
  Serious: No
  Sender: FDA-Public Use
  Company Number: US-BRISTOL-MYERS SQUIBB COMPANY-12717765

PATIENT
  Age: 22 Year
  Sex: Male

DRUGS (2)
  1. MAXIPIME [Suspect]
     Indication: NEUTROPENIA
     Dosage: VIA A CENTRAL LINE IV
     Route: 042
     Dates: start: 20040908
  2. DAPTOMYCIN [Concomitant]
     Route: 042

REACTIONS (2)
  - CHEST WALL PAIN [None]
  - INFUSION SITE REACTION [None]
